FAERS Safety Report 8336345-2 (Version None)
Quarter: 2012Q2

REPORT INFORMATION
  Report Type: 
  Country: None (occurrence: None)
  Receive Date: 20120504
  Receipt Date: 20120424
  Transmission Date: 20120825
  Serious: Yes (Other)
  Sender: FDA-Public Use
  Company Number: PHEH2012US008500

PATIENT
  Sex: Female

DRUGS (5)
  1. GLEEVEC [Suspect]
     Dosage: 100 MG, 4 TIMES PER DAY
     Route: 048
  2. VITAMIN D [Concomitant]
     Dosage: UNK UKN, UNK
  3. ATENOLOL [Concomitant]
     Dosage: UNK UKN, UNK
  4. DIOVAN [Concomitant]
     Dosage: UNK UKN, UNK
  5. LEVOTHYROXINE SODIUM [Concomitant]
     Route: 065

REACTIONS (4)
  - ASTHENIA [None]
  - RED BLOOD CELL COUNT DECREASED [None]
  - CONTUSION [None]
  - DIARRHOEA [None]
